FAERS Safety Report 21878830 (Version 2)
Quarter: 2023Q1

REPORT INFORMATION
  Report Type: Report from Study
  Country: NL (occurrence: NL)
  Receive Date: 20230118
  Receipt Date: 20230123
  Transmission Date: 20230417
  Serious: Yes (Other)
  Sender: FDA-Public Use
  Company Number: NL-ABBVIE-4271934

PATIENT
  Sex: Female

DRUGS (3)
  1. LEUPROLIDE ACETATE [Suspect]
     Active Substance: LEUPROLIDE ACETATE
     Indication: Breast cancer female
     Route: 065
  2. LORAZEPAM [Suspect]
     Active Substance: LORAZEPAM
     Indication: Anxiolytic therapy
     Dosage: 1 PILL
     Route: 065
  3. TAXOL [Suspect]
     Active Substance: PACLITAXEL
     Indication: Breast cancer female
     Route: 065

REACTIONS (17)
  - Drug dependence [Not Recovered/Not Resolved]
  - General physical condition abnormal [Unknown]
  - Intentional product misuse [Not Recovered/Not Resolved]
  - Pain [Unknown]
  - Palpitations [Unknown]
  - Tremor [Unknown]
  - Hunger [Unknown]
  - Insomnia [Not Recovered/Not Resolved]
  - Fear [Unknown]
  - Fat tissue increased [Not Recovered/Not Resolved]
  - Weight increased [Recovering/Resolving]
  - Cough [Unknown]
  - Panic attack [Not Recovered/Not Resolved]
  - Dyspnoea [Unknown]
  - Unevaluable event [Unknown]
  - Blood pressure decreased [Unknown]
  - Hyperhidrosis [Unknown]
